FAERS Safety Report 4968222-9 (Version None)
Quarter: 2006Q2

REPORT INFORMATION
  Report Type: 
  Country: None (occurrence: None)
  Receive Date: 20060405
  Receipt Date: 20060323
  Transmission Date: 20061013
  Serious: Yes (Other)
  Sender: FDA-Public Use
  Company Number: 2006025371

PATIENT
  Age: 38 Year
  Sex: Male
  Weight: 98 kg

DRUGS (2)
  1. SOMAVERT [Suspect]
     Indication: ACROMEGALY
     Dosage: 10 MG (1 IN 1 D), SUBCUTANEOUS
     Route: 058
     Dates: start: 20051028, end: 20051228
  2. BURANA (IBUPROFEN) [Concomitant]

REACTIONS (4)
  - ABDOMINAL PAIN UPPER [None]
  - BILIARY DILATATION [None]
  - HEADACHE [None]
  - HEPATIC ENZYME INCREASED [None]
